FAERS Safety Report 9208760 (Version 1)
Quarter: 2013Q1

REPORT INFORMATION
  Report Type: Spontaneous
  Country: US (occurrence: None)
  Receive Date: 20120817
  Receipt Date: 20120817
  Transmission Date: 20140127
  Serious: Yes (Hospitalization)
  Sender: FDA-Public Use
  Company Number: 125988

PATIENT
  Age: 22 Year
  Sex: Female

DRUGS (1)
  1. CYTARABINE [Suspect]
     Indication: LYMPHOCYTIC LEUKAEMIA
     Route: 042
     Dates: start: 20100528

REACTIONS (3)
  - Laboratory test abnormal [None]
  - Infection [None]
  - Headache [None]
